FAERS Safety Report 20460139 (Version 2)
Quarter: 2022Q1

REPORT INFORMATION
  Report Type: Spontaneous
  Country: US (occurrence: US)
  Receive Date: 20220211
  Receipt Date: 20220224
  Transmission Date: 20220423
  Serious: Yes (Other)
  Sender: FDA-Public Use
  Company Number: US-BAYER-2022A017012

PATIENT
  Age: 69 Year
  Sex: Male

DRUGS (2)
  1. KOGENATE FS [Suspect]
     Active Substance: ANTIHEMOPHILIC FACTOR, HUMAN RECOMBINANT
     Dosage: 1350 IU, PRN FOR BLEEDS
     Route: 042
  2. KOGENATE FS [Suspect]
     Active Substance: ANTIHEMOPHILIC FACTOR, HUMAN RECOMBINANT
     Dosage: 3 DF
     Route: 042

REACTIONS (5)
  - Skin infection [None]
  - Skin haemorrhage [Recovered/Resolved]
  - Skin swelling [None]
  - Dermatitis [None]
  - Back pain [None]

NARRATIVE: CASE EVENT DATE: 20220128
